FAERS Safety Report 6960352-5 (Version None)
Quarter: 2010Q3

REPORT INFORMATION
  Report Type: 
  Country: None (occurrence: None)
  Receive Date: 20100823
  Receipt Date: 20100505
  Transmission Date: 20110219
  Serious: Yes (Other)
  Sender: FDA-Public Use
  Company Number: WAES 1005USA00662

PATIENT
  Sex: Female

DRUGS (1)
  1. INJ IVEMEND UNK [Suspect]
     Indication: PROPHYLAXIS
     Dosage: 115 MG

REACTIONS (2)
  - DYSPNOEA [None]
  - FLUSHING [None]
